FAERS Safety Report 9281311 (Version 4)
Quarter: 2014Q1

REPORT INFORMATION
  Report Type: Spontaneous
  Country: GB (occurrence: GB)
  Receive Date: 20130509
  Receipt Date: 20140307
  Transmission Date: 20141002
  Serious: Yes (Hospitalization, Other)
  Sender: FDA-Public Use
  Company Number: GB-JNJFOC-20130502869

PATIENT
  Age: 49 Year
  Sex: Female

DRUGS (21)
  1. IBUPROFEN [Suspect]
     Route: 048
  2. IBUPROFEN [Suspect]
     Indication: PRODUCT USED FOR UNKNOWN INDICATION
     Dosage: 24 X 200 MG
     Route: 048
     Dates: start: 20130124, end: 20130124
  3. PARACETAMOL [Suspect]
     Indication: PRODUCT USED FOR UNKNOWN INDICATION
     Dosage: 16 X 500 MG
     Route: 048
     Dates: start: 20130124, end: 20130124
  4. ZAPONEX [Suspect]
     Indication: SCHIZOPHRENIA
     Route: 048
     Dates: start: 20130304, end: 20140206
  5. ZAPONEX [Suspect]
     Indication: SCHIZOPHRENIA
     Route: 048
     Dates: start: 20041014, end: 20130129
  6. FUROSEMIDE [Suspect]
     Indication: PRODUCT USED FOR UNKNOWN INDICATION
     Dosage: 28 X 40 MG
     Route: 048
     Dates: start: 20130124, end: 20130124
  7. CLOPIDOGREL SULFATE [Suspect]
     Indication: PRODUCT USED FOR UNKNOWN INDICATION
     Dosage: 28X75 MG
     Route: 048
     Dates: start: 20130124, end: 20130124
  8. CLOPIDOGREL SULFATE [Suspect]
     Indication: PRODUCT USED FOR UNKNOWN INDICATION
     Route: 048
     Dates: end: 20140206
  9. FLUOXETINE HCL [Suspect]
     Indication: PRODUCT USED FOR UNKNOWN INDICATION
     Route: 048
     Dates: end: 20140206
  10. FLUOXETINE HCL [Suspect]
     Indication: PRODUCT USED FOR UNKNOWN INDICATION
     Dosage: 56 X 20 MG
     Route: 048
     Dates: start: 20130124, end: 20130124
  11. RAMIPRIL [Suspect]
     Indication: PRODUCT USED FOR UNKNOWN INDICATION
     Dosage: 56 X 2.5 MG
     Route: 048
     Dates: start: 20130124, end: 20130124
  12. RAMIPRIL [Suspect]
     Indication: PRODUCT USED FOR UNKNOWN INDICATION
     Route: 048
     Dates: end: 20140206
  13. BISOPROLOL FUMARATE [Suspect]
     Indication: PRODUCT USED FOR UNKNOWN INDICATION
     Route: 048
     Dates: end: 20140206
  14. BISOPROLOL FUMARATE [Suspect]
     Indication: PRODUCT USED FOR UNKNOWN INDICATION
     Dosage: 56 X 10 MG
     Route: 048
     Dates: start: 20130124, end: 20130124
  15. ASPIRIN [Suspect]
     Indication: PRODUCT USED FOR UNKNOWN INDICATION
     Dosage: ONCE
     Route: 048
     Dates: start: 20130124, end: 20130124
  16. OLANZAPINE [Suspect]
     Indication: PRODUCT USED FOR UNKNOWN INDICATION
     Route: 065
     Dates: start: 20140206, end: 20140206
  17. LANSOPRAZOLE [Concomitant]
     Indication: GASTRITIS
     Route: 048
  18. LANSOPRAZOLE [Concomitant]
     Indication: DYSPEPSIA
     Route: 048
  19. GAVISCON (SODIUM ALGINATE, SODIUM BICARBONATE) [Concomitant]
     Indication: GASTRITIS
     Route: 048
  20. GAVISCON (SODIUM ALGINATE, SODIUM BICARBONATE) [Concomitant]
     Indication: DYSPEPSIA
     Route: 048
  21. CLOZAPINE [Concomitant]
     Indication: PRODUCT USED FOR UNKNOWN INDICATION
     Route: 065
     Dates: start: 20010114, end: 20041013

REACTIONS (11)
  - Intentional overdose [Recovered/Resolved]
  - Treatment noncompliance [Recovered/Resolved]
  - Renal failure acute [Recovered/Resolved]
  - Alanine aminotransferase increased [Recovered/Resolved]
  - Coma scale abnormal [Unknown]
  - Hypercholesterolaemia [Not Recovered/Not Resolved]
  - Faecal incontinence [Unknown]
  - Agitation [Unknown]
  - Confusional state [Unknown]
  - Dysarthria [Unknown]
  - Dehydration [Recovered/Resolved]
